FAERS Safety Report 8764027 (Version 1)
Quarter: 2012Q4

REPORT INFORMATION
  Report Type: 
  Country: IN (occurrence: IN)
  Receive Date: 20120831
  Receipt Date: 20120831
  Transmission Date: 20130627
  Serious: Yes (Other)
  Sender: FDA-Public Use
  Company Number: IN-SANOFI-AVENTIS-2012SA061334

PATIENT
  Age: 26 Year
  Sex: Male

DRUGS (1)
  1. CHLOROQUINE (SALT NOT SPECIFIED) [Suspect]
     Indication: MALARIA
     Route: 065

REACTIONS (11)
  - Mania [Recovering/Resolving]
  - Psychomotor hyperactivity [Recovering/Resolving]
  - Logorrhoea [Recovering/Resolving]
  - Aggression [Recovering/Resolving]
  - Irritability [Recovering/Resolving]
  - Grandiosity [Recovering/Resolving]
  - Aggression [Recovering/Resolving]
  - Insomnia [Recovering/Resolving]
  - Judgement impaired [Recovering/Resolving]
  - Anosognosia [Recovering/Resolving]
  - Psychomotor hyperactivity [Recovering/Resolving]
